FAERS Safety Report 6884402-X (Version None)
Quarter: 2010Q3

REPORT INFORMATION
  Report Type: 
  Country: None (occurrence: None)
  Receive Date: 20100729
  Receipt Date: 20070419
  Transmission Date: 20110219
  Serious: Yes (Hospitalization, Other)
  Sender: FDA-Public Use
  Company Number: US-PFIZER INC-2007058359

PATIENT
  Sex: Female
  Weight: 85.3 kg

DRUGS (8)
  1. CELEBREX [Suspect]
     Indication: EXOSTOSIS
     Route: 048
     Dates: start: 20040218
  2. CELEBREX [Suspect]
     Indication: PAIN MANAGEMENT
  3. CELEBREX [Suspect]
     Indication: ARTHRITIS
  4. ALEVE (CAPLET) [Concomitant]
  5. ACETYLSALICYLIC ACID SRT [Concomitant]
  6. BEXTRA [Concomitant]
  7. ACETAMINOPHEN [Concomitant]
  8. VIOXX [Concomitant]

REACTIONS (1)
  - MYOCARDIAL INFARCTION [None]
